FAERS Safety Report 7952693-X (Version None)
Quarter: 2011Q4

REPORT INFORMATION
  Report Type: 
  Country: None (occurrence: None)
  Receive Date: 20111129
  Receipt Date: 20111114
  Transmission Date: 20120403
  Serious: Yes (Other)
  Sender: FDA-Public Use
  Company Number: B0763956A

PATIENT
  Age: 36 Year
  Sex: Male

DRUGS (2)
  1. PIROXICAM [Concomitant]
  2. RANITIDINE HCL [Suspect]
     Indication: RENAL COLIC
     Route: 042

REACTIONS (1)
  - ANAPHYLACTIC SHOCK [None]
